FAERS Safety Report 25199166 (Version 1)
Quarter: 2025Q2

REPORT INFORMATION
  Report Type: Spontaneous
  Country: CA (occurrence: CA)
  Receive Date: 20250415
  Receipt Date: 20250415
  Transmission Date: 20250717
  Serious: Yes (Other)
  Sender: HIKMA
  Company Number: CA-HIKMA PHARMACEUTICALS USA INC.-CA-H14001-25-03137

PATIENT
  Age: 36 Year
  Sex: Male

DRUGS (1)
  1. TESTOSTERONE ENANTHATE [Suspect]
     Active Substance: TESTOSTERONE ENANTHATE
     Indication: Transgender hormonal therapy
     Dosage: 80 MILLIGRAM, QOW
     Route: 030

REACTIONS (4)
  - Blood oestrogen increased [Unknown]
  - Blood testosterone decreased [Unknown]
  - Intermenstrual bleeding [Unknown]
  - Product substitution issue [Unknown]
